FAERS Safety Report 5624678-X (Version None)
Quarter: 2008Q1

REPORT INFORMATION
  Report Type: 
  Country: None (occurrence: None)
  Receive Date: 20080213
  Receipt Date: 20080211
  Transmission Date: 20080703
  Serious: Yes (Other)
  Sender: FDA-Public Use
  Company Number: A0708735A

PATIENT
  Age: 62 Year
  Sex: Male

DRUGS (3)
  1. ARIXTRA [Suspect]
     Indication: DEEP VEIN THROMBOSIS
     Dosage: 10MG PER DAY
     Route: 058
     Dates: start: 20070101
  2. COUMADIN [Suspect]
  3. CHEMOTHERAPY [Concomitant]

REACTIONS (9)
  - BALANCE DISORDER [None]
  - EPISTAXIS [None]
  - FEELING ABNORMAL [None]
  - NEUROPATHY PERIPHERAL [None]
  - PARAESTHESIA [None]
  - PENILE ULCERATION [None]
  - RENAL HAEMORRHAGE [None]
  - SKIN DISCOLOURATION [None]
  - SKIN HAEMORRHAGE [None]
